FAERS Safety Report 23488101 (Version 1)
Quarter: 2024Q1

REPORT INFORMATION
  Report Type: Spontaneous
  Country: US (occurrence: US)
  Receive Date: 20240206
  Receipt Date: 20240206
  Transmission Date: 20240410
  Serious: Yes (Other)
  Sender: FDA-Public Use
  Company Number: US-BAYER-2024A015621

PATIENT
  Age: 70 Year
  Sex: Male

DRUGS (1)
  1. TINACTIN SUPER ABSORBENT [Suspect]
     Active Substance: TOLNAFTATE

REACTIONS (2)
  - Mesothelioma [None]
  - Exposure to chemical pollution [None]

NARRATIVE: CASE EVENT DATE: 20231219
